FAERS Safety Report 17574871 (Version 1)
Quarter: 2020Q1

REPORT INFORMATION
  Report Type: Spontaneous
  Country: JP (occurrence: JP)
  Receive Date: 20200324
  Receipt Date: 20200324
  Transmission Date: 20200409
  Serious: Yes (Other)
  Sender: FDA-Public Use
  Company Number: JP-GLAXOSMITHKLINE-JP2020JPN047875

PATIENT
  Age: 53 Year
  Sex: Male
  Weight: 80 kg

DRUGS (12)
  1. PREDNISOLONE. [Concomitant]
     Active Substance: PREDNISOLONE
     Dosage: 15 MG, 1D
     Dates: start: 20191029
  2. XELJANZ [Suspect]
     Active Substance: TOFACITINIB CITRATE
     Dosage: 5 MG, 1D
     Route: 048
     Dates: start: 20190815
  3. METOLATE TABLETS [Concomitant]
     Indication: RHEUMATOID ARTHRITIS
     Dosage: 4 MG, WE
     Route: 048
     Dates: start: 20180828, end: 20180925
  4. METOLATE TABLETS [Concomitant]
     Dosage: 12 MG, WE
     Route: 048
     Dates: start: 20190815
  5. PREDNISOLONE. [Concomitant]
     Active Substance: PREDNISOLONE
     Dosage: 7.5 MG, QD
     Route: 048
     Dates: start: 20190907, end: 20191028
  6. TACROLIMUS. [Concomitant]
     Active Substance: TACROLIMUS
     Dosage: 3 MG
     Dates: start: 20191119
  7. METOLATE TABLETS [Concomitant]
     Dosage: 8 MG, WE
     Route: 048
     Dates: start: 20180926, end: 20181022
  8. TACROLIMUS. [Concomitant]
     Active Substance: TACROLIMUS
     Indication: RHEUMATOID ARTHRITIS
     Dosage: 1.5 MG
     Dates: start: 20191029, end: 20191118
  9. METOLATE TABLETS [Concomitant]
     Dosage: 12 MG, WE
     Route: 048
     Dates: start: 20181023, end: 20190807
  10. PREDNISOLONE. [Concomitant]
     Active Substance: PREDNISOLONE
     Indication: RHEUMATOID ARTHRITIS
     Dosage: 9 MG, QD
     Route: 048
     Dates: start: 20190730, end: 20190906
  11. ZOVIRAX [Suspect]
     Active Substance: ACYCLOVIR
     Indication: CYTOMEGALOVIRUS CHORIORETINITIS
     Dosage: 800 MG, TID
     Route: 041
     Dates: start: 20190802, end: 20190807
  12. XELJANZ [Suspect]
     Active Substance: TOFACITINIB CITRATE
     Indication: RHEUMATOID ARTHRITIS
     Dosage: 5 MG, BID
     Route: 048
     Dates: start: 20180731, end: 20190807

REACTIONS (4)
  - Rheumatoid arthritis [Unknown]
  - Product use in unapproved indication [Unknown]
  - Interstitial lung disease [Unknown]
  - Renal disorder [Recovering/Resolving]

NARRATIVE: CASE EVENT DATE: 20190802
